FAERS Safety Report 7399961-0 (Version None)
Quarter: 2011Q2

REPORT INFORMATION
  Report Type: 
  Country: None (occurrence: None)
  Receive Date: 20110405
  Receipt Date: 20110405
  Transmission Date: 20111010
  Serious: Yes (Other)
  Sender: FDA-Public Use
  Company Number: None

PATIENT
  Age: 43 Year
  Sex: Female
  Weight: 75 kg

DRUGS (2)
  1. PROMETHAZINE [Suspect]
     Indication: VOMITING
     Dosage: 12.5-25MG IVP Q P6H  PRN
     Route: 042
     Dates: start: 20100418
  2. PROMETHAZINE [Suspect]
     Indication: NAUSEA
     Dosage: 12.5-25MG IVP Q P6H  PRN
     Route: 042
     Dates: start: 20100418

REACTIONS (1)
  - EXTRAPYRAMIDAL DISORDER [None]
